FAERS Safety Report 8793136 (Version 4)
Quarter: 2013Q2

REPORT INFORMATION
  Report Type: Report from Study
  Country: JP (occurrence: JP)
  Receive Date: 20120918
  Receipt Date: 20130509
  Transmission Date: 20140414
  Serious: Yes (Hospitalization, Other)
  Sender: FDA-Public Use
  Company Number: JP-009507513-1209JPN005189

PATIENT
  Age: 57 Year
  Sex: Female
  Weight: 67 kg

DRUGS (10)
  1. PEGINTRON [Suspect]
     Indication: CHRONIC HEPATITIS C
     Dosage: 1.5 MICROGRAM PER KILOGRAM, QW
     Route: 058
     Dates: start: 20120720, end: 20121116
  2. REBETOL [Suspect]
     Indication: CHRONIC HEPATITIS C
     Dosage: 600 MG, QD
     Route: 048
     Dates: start: 20120720, end: 20120814
  3. REBETOL [Suspect]
     Dosage: 600 MG, QD
     Route: 048
     Dates: start: 20120817, end: 20121122
  4. TELAVIC [Suspect]
     Indication: CHRONIC HEPATITIS C
     Dosage: 1500 MG, QD
     Route: 048
     Dates: start: 20120720, end: 20120814
  5. TELAVIC [Suspect]
     Dosage: 750 MG, QD
     Route: 048
     Dates: start: 20120824, end: 20120830
  6. TELAVIC [Suspect]
     Dosage: 1000 MG, QD
     Route: 048
     Dates: start: 20120831, end: 20121112
  7. LOXONIN [Concomitant]
     Indication: PROPHYLAXIS
     Dosage: 60 MG PER DAY AS NEEDED
     Route: 048
     Dates: start: 20120720, end: 20121122
  8. MUCOSTA [Concomitant]
     Indication: PROPHYLAXIS
     Dosage: 100 MG, PER DAY AS NEEDED; POR
     Route: 048
     Dates: start: 20120720, end: 20121122
  9. GAMOFA D [Concomitant]
     Indication: PROPHYLAXIS
     Dosage: 40 MG, QD;POR
     Route: 048
     Dates: start: 20120720, end: 20121122
  10. CELESTAMINE COMBINATION [Concomitant]
     Indication: PROPHYLAXIS
     Dosage: 3 DF, QD
     Route: 048
     Dates: end: 20121122

REACTIONS (4)
  - Proctalgia [Recovered/Resolved]
  - Laryngeal pain [Recovered/Resolved]
  - Toxic skin eruption [Recovering/Resolving]
  - Rash [Recovered/Resolved]
